FAERS Safety Report 17817380 (Version 1)
Quarter: 2020Q2

REPORT INFORMATION
  Report Type: Spontaneous
  Country: FR (occurrence: FR)
  Receive Date: 20200522
  Receipt Date: 20200522
  Transmission Date: 20200714
  Serious: Yes (Other)
  Sender: FDA-Public Use
  Company Number: FR-US-PROVELL PHARMACEUTICALS LLC-E2B_90075558

PATIENT
  Age: 73 Year
  Sex: Female

DRUGS (3)
  1. AUGMENTIN [Interacting]
     Active Substance: AMOXICILLIN\CLAVULANATE POTASSIUM
     Indication: CORONAVIRUS INFECTION
     Dosage: THERAPY START DATE: FEB 2020
     Dates: end: 202002
  2. PYOSTACINE [Interacting]
     Active Substance: PRISTINAMYCIN
     Indication: CORONAVIRUS INFECTION
     Dosage: THERAPY START DATE: 21 FEB 2020
     Dates: end: 20200228
  3. LEVOTHYROX 75 [Suspect]
     Active Substance: LEVOTHYROXINE
     Indication: AUTOIMMUNE THYROIDITIS
     Dosage: 2-3 YEARS AGO (UNSPECIFIED DATE) SWITCHED TO NEW FORMULATION
     Dates: end: 20200513

REACTIONS (7)
  - Blood thyroid stimulating hormone increased [Unknown]
  - Weight increased [Unknown]
  - Loss of consciousness [Recovered/Resolved]
  - Coronavirus infection [Unknown]
  - Blood glucose increased [Unknown]
  - Paraesthesia [Recovered/Resolved]
  - Drug interaction [Unknown]

NARRATIVE: CASE EVENT DATE: 201910
